FAERS Safety Report 11847459 (Version 1)
Quarter: 2015Q4

REPORT INFORMATION
  Report Type: Spontaneous
  Country: US (occurrence: US)
  Receive Date: 20151217
  Receipt Date: 20151217
  Transmission Date: 20160305
  Serious: No
  Sender: FDA-Public Use
  Company Number: US-ABBVIE-15P-163-1487628-00

PATIENT
  Age: 59 Year
  Sex: Male

DRUGS (1)
  1. TRILIPIX [Suspect]
     Active Substance: FENOFIBRIC ACID
     Indication: PRODUCT USED FOR UNKNOWN INDICATION
     Route: 065

REACTIONS (2)
  - Muscle disorder [Unknown]
  - Myalgia [Unknown]
